FAERS Safety Report 4796721-1 (Version None)
Quarter: 2005Q3

REPORT INFORMATION
  Report Type: 
  Country: None (occurrence: None)
  Receive Date: 20050916
  Receipt Date: 20050525
  Transmission Date: 20060218
  Serious: Yes (Life-Threatening, Hospitalization, Disabling)
  Sender: FDA-Public Use
  Company Number: US-JNJFOC-20041101108

PATIENT
  Age: 51 Year
  Sex: Female
  Weight: 85.7298 kg

DRUGS (8)
  1. TOPAMAX [Suspect]
     Indication: WEIGHT DECREASED
     Dosage: 100 MG, 1 IN 1 DAY, ORAL
     Route: 048
     Dates: start: 20040201
  2. SEROQUIL (QUETIAPINE FUMARATE ) [Concomitant]
  3. PROZAC [Concomitant]
  4. VICODIN [Concomitant]
  5. ATARAX [Concomitant]
  6. XANAX (ALPRAZOLAM) UNKNOWN [Concomitant]
  7. PROTONIX (PANTOPRAZOLE) UNKNOWN [Concomitant]
  8. PRAVACHOL (PRAVASTATIN SODIUM) UNKNOWN [Concomitant]

REACTIONS (5)
  - BENIGN NEOPLASM OF ADRENAL GLAND [None]
  - BLOOD AMYLASE INCREASED [None]
  - BLOOD TRIGLYCERIDES INCREASED [None]
  - LIPASE INCREASED [None]
  - PANCREATITIS [None]
